FAERS Safety Report 7607717-6 (Version None)
Quarter: 2011Q3

REPORT INFORMATION
  Report Type: 
  Country: None (occurrence: None)
  Receive Date: 20110713
  Receipt Date: 20110523
  Transmission Date: 20111222
  Serious: Yes (Hospitalization)
  Sender: FDA-Public Use
  Company Number: PHHY2011RU46088

PATIENT
  Sex: Female
  Weight: 26 kg

DRUGS (1)
  1. EXJADE [Suspect]
     Indication: THALASSAEMIA BETA
     Dosage: 20 MG/KG/DAY
     Route: 048
     Dates: start: 20091020

REACTIONS (2)
  - AUTOIMMUNE DISORDER [None]
  - HAEMOLYSIS [None]
